FAERS Safety Report 13586641 (Version 4)
Quarter: 2017Q2

REPORT INFORMATION
  Report Type: Spontaneous
  Country: US (occurrence: US)
  Receive Date: 20170526
  Receipt Date: 20170616
  Transmission Date: 20170830
  Serious: Yes (Hospitalization, Other)
  Sender: FDA-Public Use
  Company Number: US-TEVA-773643ACC

PATIENT
  Age: 75 Year
  Sex: Female

DRUGS (4)
  1. RITUXIMAB [Concomitant]
     Active Substance: RITUXIMAB
     Indication: B-CELL PROLYMPHOCYTIC LEUKAEMIA
     Dosage: (DAY 1 REPEATED ON A 28 DAY CYCLE FOR 6 CYCLES)
     Route: 065
  2. ALLOPURINOL. [Suspect]
     Active Substance: ALLOPURINOL
     Indication: TUMOUR LYSIS SYNDROME
     Route: 065
  3. DEXAMETHASONE. [Concomitant]
     Active Substance: DEXAMETHASONE
     Indication: PROPHYLAXIS
     Route: 065
  4. BENDAMUSTINE HYDROCHLORIDE. [Suspect]
     Active Substance: BENDAMUSTINE HYDROCHLORIDE
     Indication: B-CELL PROLYMPHOCYTIC LEUKAEMIA
     Dosage: (ON DAYS 1 AND 2)
     Route: 042

REACTIONS (12)
  - Leukaemia [Unknown]
  - Asthenia [Unknown]
  - Drug eruption [Unknown]
  - Cutaneous vasculitis [Unknown]
  - Rash pruritic [Unknown]
  - Prescribed underdose [Unknown]
  - Gastrointestinal haemorrhage [Unknown]
  - Petechiae [Unknown]
  - Cough [Recovering/Resolving]
  - Anaemia [Unknown]
  - Dyspnoea [Recovering/Resolving]
  - Thrombocytopenia [Unknown]
